FAERS Safety Report 7098640 (Version 6)
Quarter: 2020Q3

REPORT INFORMATION
  Report Type: Spontaneous
  Country: US (occurrence: US)
  Receive Date: 20090827
  Receipt Date: 20100728
  Transmission Date: 20201104
  Serious: Yes (Death)
  Sender: FDA-Public Use
  Company Number: GB-SANOFI-AVENTIS-200919257GDDC

PATIENT
  Age: 76 Year
  Sex: Female

DRUGS (10)
  1. SYNTHROID [Suspect]
     Active Substance: LEVOTHYROXINE SODIUM
  2. NORVASC [Suspect]
     Active Substance: AMLODIPINE BESYLATE
  3. HYDROCHLOROTHIAZIDE. [Suspect]
     Active Substance: HYDROCHLOROTHIAZIDE
  4. ASPIRIN. [Suspect]
     Active Substance: ASPIRIN
  5. GLIBENCLAMIDE [Suspect]
     Active Substance: GLYBURIDE
  6. CALCIUM PHOSPHATE\ERGOCALCIFEROL [Suspect]
     Active Substance: CALCIUM PHOSPHATE\ERGOCALCIFEROL
     Indication: OSTEOPOROSIS
     Route: 048
  7. METFORMIN HYDROCHLORIDE. [Suspect]
     Active Substance: METFORMIN HYDROCHLORIDE
  8. IBANDRONIC ACID. [Suspect]
     Active Substance: IBANDRONIC ACID
     Indication: OSTEOPOROSIS
     Dates: start: 20060103, end: 20090717
  9. ARIMIDEX [Suspect]
     Active Substance: ANASTROZOLE
     Route: 048
     Dates: start: 20060118
  10. COZAAR [Suspect]
     Active Substance: LOSARTAN POTASSIUM

REACTIONS (1)
  - Sudden death [Fatal]

NARRATIVE: CASE EVENT DATE: 20090717
